FAERS Safety Report 9214920 (Version 1)
Quarter: 2013Q2

REPORT INFORMATION
  Report Type: Spontaneous
  Country: US (occurrence: US)
  Receive Date: 20130405
  Receipt Date: 20130405
  Transmission Date: 20140414
  Serious: Yes (Other)
  Sender: FDA-Public Use
  Company Number: CHPA2013US005551

PATIENT
  Sex: Male

DRUGS (1)
  1. EXCEDRIN UNKNOWN [Suspect]
     Indication: PAIN
     Dosage: 1 DF, PRN
     Route: 048

REACTIONS (4)
  - Cardiac disorder [Recovered/Resolved]
  - Prostate cancer [Recovered/Resolved]
  - Energy increased [Recovered/Resolved]
  - Underdose [Unknown]
